FAERS Safety Report 14109732 (Version 2)
Quarter: 2017Q4

REPORT INFORMATION
  Report Type: Spontaneous
  Country: US (occurrence: US)
  Receive Date: 20171020
  Receipt Date: 20171113
  Transmission Date: 20180321
  Serious: No
  Sender: FDA-Public Use
  Company Number: US-TEVA-816037ACC

PATIENT
  Age: 35 Year
  Sex: Female
  Weight: 117.13 kg

DRUGS (1)
  1. PARAGARD T 380A [Suspect]
     Active Substance: COPPER
     Indication: CONTRACEPTION
     Dates: start: 20170817, end: 20171009

REACTIONS (2)
  - Back pain [Recovered/Resolved with Sequelae]
  - Pelvic pain [Recovered/Resolved with Sequelae]

NARRATIVE: CASE EVENT DATE: 20170817
